FAERS Safety Report 4325348-0 (Version None)
Quarter: 2004Q1

REPORT INFORMATION
  Report Type: 
  Country: None (occurrence: None)
  Receive Date: 20040324
  Receipt Date: 20040309
  Transmission Date: 20041129
  Serious: Yes (Hospitalization)
  Sender: FDA-Public Use
  Company Number: EWC040237964

PATIENT
  Age: 65 Year
  Sex: Female

DRUGS (6)
  1. ZYPREXA [Suspect]
     Indication: DEPRESSION
     Dosage: 5 MG/DAY
     Dates: start: 20030401, end: 20030916
  2. ZOLOFT [Concomitant]
  3. MADOPAR [Concomitant]
  4. ZOLPIDEM TARTRATE [Concomitant]
  5. LOSEC (OMEPRAZOLE) [Concomitant]
  6. SOBRIL (OXAZEPAM) [Concomitant]

REACTIONS (4)
  - FALL [None]
  - INJURY [None]
  - PARKINSON'S DISEASE [None]
  - RHABDOMYOLYSIS [None]
